FAERS Safety Report 17590056 (Version 3)
Quarter: 2020Q2

REPORT INFORMATION
  Report Type: Spontaneous
  Country: US (occurrence: US)
  Receive Date: 20200327
  Receipt Date: 20200605
  Transmission Date: 20200713
  Serious: Yes (Hospitalization)
  Sender: FDA-Public Use
  Company Number: US-INSMED, INC.-US-INS-20-00338

PATIENT
  Age: 82 Year
  Sex: Female

DRUGS (4)
  1. LAMIRA NEBULIZER SYSTEM [Suspect]
     Active Substance: DEVICE
  2. ARIKAYCE [Suspect]
     Active Substance: AMIKACIN
     Indication: BRONCHIECTASIS
  3. ARIKAYCE [Suspect]
     Active Substance: AMIKACIN
     Indication: PSEUDOMONAS INFECTION
     Route: 055
     Dates: start: 2020
  4. ARIKAYCE [Suspect]
     Active Substance: AMIKACIN
     Indication: MYCOBACTERIAL INFECTION
     Route: 055
     Dates: start: 20200121, end: 20200317

REACTIONS (10)
  - Respiratory tract irritation [Unknown]
  - Pulmonary haemorrhage [Unknown]
  - Oxygen saturation decreased [Recovered/Resolved]
  - Influenza [Not Recovered/Not Resolved]
  - Dysphonia [Not Recovered/Not Resolved]
  - Haemoptysis [Unknown]
  - Off label use [Unknown]
  - Dizziness [Recovered/Resolved]
  - Asthenia [Recovered/Resolved]
  - Haematemesis [Unknown]

NARRATIVE: CASE EVENT DATE: 2020
